FAERS Safety Report 9298776 (Version 8)
Quarter: 2013Q3

REPORT INFORMATION
  Report Type: Report from Study
  Country: US (occurrence: US)
  Receive Date: 20130520
  Receipt Date: 20130919
  Transmission Date: 20140515
  Serious: Yes (Hospitalization, Other)
  Sender: FDA-Public Use
  Company Number: US-GLAXOSMITHKLINE-B0892538A

PATIENT
  Age: 59 Year
  Sex: Male
  Weight: 104 kg

DRUGS (6)
  1. BUPROPION HYDROCHLORIDE [Suspect]
     Indication: EX-TOBACCO USER
     Dosage: 150MG TWICE PER DAY
     Route: 048
     Dates: start: 20130412, end: 20130501
  2. LITHIUM CARBONATE [Concomitant]
     Dates: start: 20100610
  3. MIRTAZAPINE [Concomitant]
     Dates: start: 201201
  4. SIMVASTATIN [Concomitant]
     Dates: start: 20120803
  5. ACETYLSALICYLIC ACID [Concomitant]
     Dates: start: 2004
  6. CITRUCEL [Concomitant]
     Dates: start: 1998

REACTIONS (3)
  - Bipolar II disorder [Recovered/Resolved]
  - Alcoholism [Recovered/Resolved]
  - Alcohol withdrawal syndrome [Recovered/Resolved]
